FAERS Safety Report 18725259 (Version 2)
Quarter: 2021Q1

REPORT INFORMATION
  Report Type: Report from Study
  Country: BR (occurrence: BR)
  Receive Date: 20210111
  Receipt Date: 20210306
  Transmission Date: 20210419
  Serious: Yes (Hospitalization, Disabling, Other)
  Sender: FDA-Public Use
  Company Number: NVSC2020BR312279

PATIENT
  Age: 41 Year
  Sex: Male

DRUGS (1)
  1. VOTRIENT [Suspect]
     Active Substance: PAZOPANIB HYDROCHLORIDE
     Indication: RENAL CANCER METASTATIC
     Dosage: 400 MG (2 TABLETS A DAY)
     Route: 065
     Dates: start: 20201113

REACTIONS (9)
  - Headache [Not Recovered/Not Resolved]
  - Movement disorder [Recovering/Resolving]
  - Dyspnoea [Unknown]
  - Thrombosis [Not Recovered/Not Resolved]
  - Paralysis [Unknown]
  - Lung neoplasm malignant [Unknown]
  - Hepatic cancer [Unknown]
  - Neoplasm [Unknown]
  - Gait disturbance [Recovering/Resolving]

NARRATIVE: CASE EVENT DATE: 20210225
